FAERS Safety Report 7756907-0 (Version None)
Quarter: 2011Q3

REPORT INFORMATION
  Report Type: 
  Country: None (occurrence: None)
  Receive Date: 20110916
  Receipt Date: 20110912
  Transmission Date: 20111222
  Serious: Yes (Disabling)
  Sender: FDA-Public Use
  Company Number: US-GLAXOSMITHKLINE-A0944174A

PATIENT
  Age: 18 Year
  Sex: Female

DRUGS (7)
  1. VITAMIN D SUPPLEMENT [Concomitant]
  2. ADDERALL 5 [Concomitant]
  3. DEPLIN [Concomitant]
  4. LAMICTAL [Suspect]
     Indication: BIPOLAR DISORDER
     Dosage: 200MG PER DAY
     Route: 048
     Dates: start: 20060101
  5. LEXAPRO [Concomitant]
  6. DOXYCYCLINE [Concomitant]
  7. LOVAZA [Concomitant]

REACTIONS (6)
  - FATIGUE [None]
  - MYALGIA [None]
  - PYREXIA [None]
  - ARTHRALGIA [None]
  - VIRAL INFECTION [None]
  - LIVER FUNCTION TEST ABNORMAL [None]
